FAERS Safety Report 5872347-3 (Version None)
Quarter: 2008Q3

REPORT INFORMATION
  Report Type: 
  Country: None (occurrence: None)
  Receive Date: 20080905
  Receipt Date: 20080829
  Transmission Date: 20090109
  Serious: Yes (Other)
  Sender: FDA-Public Use
  Company Number: JP-AVENTIS-200513084JP

PATIENT
  Age: 30 Year
  Sex: Female
  Weight: 64 kg

DRUGS (15)
  1. LANTUS [Suspect]
     Route: 058
     Dates: start: 20040224, end: 20080226
  2. OPTICLIK (INSULIN INJECTION PEN) [Suspect]
     Dates: start: 20051004, end: 20080226
  3. HUMALOG [Suspect]
     Route: 058
     Dates: start: 20040210, end: 20041012
  4. HUMALOG [Suspect]
     Route: 058
     Dates: start: 20041102, end: 20071223
  5. NOVORAPID [Suspect]
     Route: 058
     Dates: start: 20061219, end: 20070313
  6. NOVORAPID [Suspect]
     Route: 058
     Dates: start: 20070516
  7. NOVOLIN R [Concomitant]
     Route: 058
     Dates: start: 20041019, end: 20041102
  8. NOVOLIN N [Concomitant]
     Route: 058
     Dates: start: 20050215, end: 20050616
  9. NOVOLIN N [Concomitant]
     Dates: start: 20070703
  10. HUMALOG [Concomitant]
     Dosage: DOSE: 90 UNITS/DAY
     Route: 058
     Dates: start: 20070313, end: 20070527
  11. LEVEMIR [Concomitant]
     Dosage: DOSE: 100 UNITS/DAY
     Route: 058
     Dates: start: 20080226, end: 20080318
  12. EUGLUCON [Concomitant]
     Route: 048
     Dates: start: 20060822, end: 20060905
  13. AMARYL [Concomitant]
     Dosage: DOSE: 1 TO 3 MG/DAY
     Route: 048
     Dates: start: 20060919, end: 20071218
  14. ACTOS [Concomitant]
     Route: 048
     Dates: start: 20061112, end: 20070417
  15. UNKNOWN DRUG [Concomitant]

REACTIONS (7)
  - ANTI-INSULIN ANTIBODY INCREASED [None]
  - HYPERGLYCAEMIA [None]
  - INJECTION SITE ERYTHEMA [None]
  - INJECTION SITE INDURATION [None]
  - INJECTION SITE PAIN [None]
  - INJECTION SITE PRURITUS [None]
  - INSULIN RESISTANCE [None]
